FAERS Safety Report 6267252-7 (Version None)
Quarter: 2009Q3

REPORT INFORMATION
  Report Type: 
  Country: None (occurrence: None)
  Receive Date: 20090714
  Receipt Date: 20090714
  Transmission Date: 20100115
  Serious: Yes (Hospitalization, Other)
  Sender: FDA-Public Use
  Company Number: US-PFIZER INC-2009219528

PATIENT
  Sex: Female
  Weight: 45.805 kg

DRUGS (4)
  1. TOVIAZ [Suspect]
     Indication: HYPERTONIC BLADDER
     Dosage: 4 MG, 1X/DAY
     Dates: start: 20090511, end: 20090511
  2. CELEBREX [Concomitant]
  3. VERAPAMIL [Concomitant]
     Dosage: UNK
  4. PREVACID [Concomitant]
     Dosage: UNK

REACTIONS (5)
  - DEEP VEIN THROMBOSIS [None]
  - FACE OEDEMA [None]
  - OEDEMA [None]
  - OEDEMA PERIPHERAL [None]
  - URTICARIA [None]
